FAERS Safety Report 7305232-0 (Version None)
Quarter: 2011Q1

REPORT INFORMATION
  Report Type: 
  Country: None (occurrence: None)
  Receive Date: 20110222
  Receipt Date: 20110209
  Transmission Date: 20110831
  Serious: Yes (Other)
  Sender: FDA-Public Use
  Company Number: FR-PFIZER INC-2009206836

PATIENT
  Age: 21 Year
  Sex: Female

DRUGS (5)
  1. LANTUS [Suspect]
     Indication: TYPE 1 DIABETES MELLITUS
     Dosage: UNK
     Dates: end: 20070403
  2. NEURONTIN [Suspect]
     Indication: DIABETIC NEUROPATHY
     Dosage: 800 MG, 2X/DAY
  3. MICROVAL [Suspect]
     Indication: CONTRACEPTION
     Dosage: 0.03 MG, 1X/DAY
     Route: 048
     Dates: end: 20070219
  4. HUMALOG [Suspect]
     Indication: TYPE 1 DIABETES MELLITUS
     Dosage: UNK
  5. UMULINE [Suspect]
     Indication: TYPE 1 DIABETES MELLITUS
     Dosage: UNK
     Dates: start: 20070403

REACTIONS (7)
  - TREATMENT NONCOMPLIANCE [None]
  - PYREXIA [None]
  - PREGNANCY [None]
  - PLACENTAL DISORDER [None]
  - DRUG ADMINISTRATION ERROR [None]
  - INTRA-UTERINE DEATH [None]
  - UNINTENDED PREGNANCY [None]
